FAERS Safety Report 6026773-2 (Version None)
Quarter: 2009Q1

REPORT INFORMATION
  Report Type: 
  Country: None (occurrence: None)
  Receive Date: 20090105
  Receipt Date: 20081229
  Transmission Date: 20090719
  Serious: Yes (Other)
  Sender: FDA-Public Use
  Company Number: US-JNJFOC-20081101721

PATIENT
  Sex: Female
  Weight: 78.02 kg

DRUGS (3)
  1. LEVAQUIN [Suspect]
     Indication: INFECTION PROPHYLAXIS
     Route: 048
  2. LEVAQUIN [Suspect]
     Indication: LIMB OPERATION
     Route: 048
  3. DEMEROL [Concomitant]
     Indication: PAIN MANAGEMENT
     Route: 048

REACTIONS (3)
  - HAND DEFORMITY [None]
  - SKIN EXFOLIATION [None]
  - TENDON PAIN [None]
